FAERS Safety Report 14988646 (Version 1)
Quarter: 2018Q2

REPORT INFORMATION
  Report Type: Spontaneous
  Country: FR (occurrence: FR)
  Receive Date: 20180608
  Receipt Date: 20180608
  Transmission Date: 20180711
  Serious: Yes (Hospitalization)
  Sender: FDA-Public Use
  Company Number: FR-PFIZER INC-2018228193

PATIENT
  Age: 62 Year
  Sex: Female

DRUGS (24)
  1. MESNA EG [Suspect]
     Active Substance: MESNA
     Dosage: 3200 MG, 1X/DAY
     Route: 041
     Dates: start: 20180221, end: 20180223
  2. METHYLPREDNISOLONE. [Concomitant]
     Active Substance: METHYLPREDNISOLONE
     Dosage: 80 MG, SINGLE
     Route: 042
     Dates: start: 20180220, end: 20180220
  3. IMOVANE [Concomitant]
     Active Substance: ZOPICLONE
     Dosage: 7.5 MG, AS NEEDED
     Route: 048
  4. ARACYTINE [Suspect]
     Active Substance: CYTARABINE
     Indication: DIFFUSE LARGE B-CELL LYMPHOMA
     Dosage: 4000 MG, 1X/DAY
     Route: 041
     Dates: start: 20180221, end: 20180222
  5. NOVONORM [Concomitant]
     Active Substance: REPAGLINIDE
     Dosage: 1.5 MG, 1X/DAY
     Route: 048
  6. OROZAMUDOL [Concomitant]
     Active Substance: TRAMADOL
     Dosage: 200 MG, AS NEEDED
  7. LAMOTRIGINE. [Concomitant]
     Active Substance: LAMOTRIGINE
     Dosage: 200 MG, 1X/DAY
     Route: 048
  8. MOVICOL [Concomitant]
     Active Substance: POLYETHYLENE GLYCOL 3350\POTASSIUM CHLORIDE\SODIUM BICARBONATE\SODIUM CHLORIDE
     Indication: CONSTIPATION
     Dosage: 2 TO 4 SACHETS A DAY IF CONSTIPATION
     Route: 048
  9. CLOMIPRAMINE [Concomitant]
     Active Substance: CLOMIPRAMINE
     Dosage: 150 MG, 1X/DAY
     Route: 048
  10. SPECIAFOLDINE [Concomitant]
     Active Substance: FOLIC ACID
     Dosage: 10 MG, 1X/DAY
     Route: 048
  11. LANSOYL [Concomitant]
     Active Substance: MINERAL OIL
     Indication: CONSTIPATION
     Dosage: 1 CONTAINER DOSE 2 TIMES DAILY IF CONSTIPATION
  12. GRANOCYTE [Concomitant]
     Active Substance: LENOGRASTIM
     Dosage: 1 INJECTION PER DAY FOR 7 DAYS FROM D6 OF CHEMOTHERAPY
     Route: 058
  13. CERIS [Concomitant]
     Active Substance: TROSPIUM CHLORIDE
     Dosage: 20 MG, 1X/DAY
     Route: 048
  14. TEMESTA (LORAZEPAM) [Concomitant]
     Active Substance: LORAZEPAM
     Dosage: 1/2 TABLET IN THE MORNING AND NOON, 1 AT BEDTIME
     Route: 048
  15. ATORVASTATIN [Concomitant]
     Active Substance: ATORVASTATIN
     Dosage: 20 MG, 1X/DAY
     Route: 048
  16. IFOSFAMIDE. [Suspect]
     Active Substance: IFOSFAMIDE
     Indication: DIFFUSE LARGE B-CELL LYMPHOMA
     Dosage: 2500 MG, 1X/DAY
     Route: 041
     Dates: start: 20180221, end: 20180223
  17. ZOPHREN [Concomitant]
     Active Substance: ONDANSETRON
     Indication: NAUSEA
     Dosage: 1 TABLET MORNING AND EVENING UNTIL D3 OF CHEMOTHERAPY IF NAUSEATED
     Route: 048
  18. PANTOPRAZOLE [Concomitant]
     Active Substance: PANTOPRAZOLE
     Dosage: 20 MG, 1X/DAY
     Route: 048
  19. TERCIAN [Concomitant]
     Active Substance: CYAMEMAZINE
     Dosage: 10 GTT, UNK
     Route: 048
  20. RITUXIMAB. [Suspect]
     Active Substance: RITUXIMAB
     Indication: DIFFUSE LARGE B-CELL LYMPHOMA
     Dosage: 700 MG, CYCLIC
     Route: 041
     Dates: start: 20171120, end: 20180220
  21. WELLVONE [Suspect]
     Active Substance: ATOVAQUONE
     Dosage: 2 DF, 1X/DAY
     Route: 048
     Dates: start: 20180222
  22. METHYLPREDNISOLONE. [Concomitant]
     Active Substance: METHYLPREDNISOLONE
     Dosage: 80 MG, 1X/DAY
     Route: 042
     Dates: start: 20180220, end: 20180220
  23. PRIMPERAN [Concomitant]
     Active Substance: METOCLOPRAMIDE HYDROCHLORIDE
     Indication: NAUSEA
     Dosage: TABLETS 3 TIMES DAILY MAXIMUM IF NAUSEATED
     Route: 048
  24. ZELITREX [Concomitant]
     Active Substance: VALACYCLOVIR HYDROCHLORIDE
     Dosage: 1000 MG, 1X/DAY
     Route: 048

REACTIONS (2)
  - Hallucination [Recovering/Resolving]
  - Confusional state [Recovering/Resolving]

NARRATIVE: CASE EVENT DATE: 20180227
